FAERS Safety Report 11999251 (Version 1)
Quarter: 2016Q1

REPORT INFORMATION
  Report Type: Spontaneous
  Country: DE (occurrence: DE)
  Receive Date: 20160204
  Receipt Date: 20160204
  Transmission Date: 20160526
  Serious: Yes (Congenital Anomaly)
  Sender: FDA-Public Use
  Company Number: DE-BRISTOL-MYERS SQUIBB COMPANY-10893717

PATIENT
  Age: 0 Year
  Sex: Male
  Weight: 3.98 kg

DRUGS (1)
  1. GLUCOPHAGE [Suspect]
     Active Substance: METFORMIN HYDROCHLORIDE
     Indication: PRODUCT USED FOR UNKNOWN INDICATION
     Dosage: 850 MG, QD
     Route: 064
     Dates: start: 199911, end: 200004

REACTIONS (3)
  - Foetal exposure during pregnancy [Unknown]
  - Renal cyst [Unknown]
  - Congenital absence of bile ducts [Unknown]

NARRATIVE: CASE EVENT DATE: 2000
